FAERS Safety Report 13451109 (Version 1)
Quarter: 2017Q2

REPORT INFORMATION
  Report Type: Spontaneous
  Country: US (occurrence: US)
  Receive Date: 20170417
  Receipt Date: 20170417
  Transmission Date: 20170830
  Serious: Yes (Other)
  Sender: FDA-Public Use
  Company Number: None

PATIENT
  Age: 68 Year
  Sex: Female
  Weight: 58.5 kg

DRUGS (9)
  1. PREMARIN [Concomitant]
     Active Substance: ESTROGENS, CONJUGATED
  2. PERICOLACE [Concomitant]
  3. BENADRYL [Concomitant]
     Active Substance: DIPHENHYDRAMINE HYDROCHLORIDE
  4. SYNTHROID [Concomitant]
     Active Substance: LEVOTHYROXINE SODIUM
  5. LOSATON [Concomitant]
  6. OMNEPROZOLE [Concomitant]
  7. METAMUCIL [Concomitant]
     Active Substance: PLANTAGO SEED
  8. VITAMIN D [Concomitant]
     Active Substance: CHOLECALCIFEROL
  9. FOSAMAX [Suspect]
     Active Substance: ALENDRONATE SODIUM
     Indication: OSTEOPENIA
     Dosage: ?          QUANTITY:1 TABLET(S);OTHER FREQUENCY:WEEKLY;?
     Route: 048
     Dates: start: 20010912, end: 20090209

REACTIONS (6)
  - Product substitution issue [None]
  - Pyloric stenosis [None]
  - Regurgitation [None]
  - Impaired gastric emptying [None]
  - Diarrhoea [None]
  - Gastritis [None]

NARRATIVE: CASE EVENT DATE: 20090202
